FAERS Safety Report 7715701-7 (Version None)
Quarter: 2011Q3

REPORT INFORMATION
  Report Type: 
  Country: None (occurrence: None)
  Receive Date: 20110829
  Receipt Date: 20110826
  Transmission Date: 20111222
  Serious: Yes (Hospitalization, Other)
  Sender: FDA-Public Use
  Company Number: JP-PFIZER INC-2011199742

PATIENT
  Age: 51 Year
  Sex: Female

DRUGS (2)
  1. LYRICA [Suspect]
     Indication: HYPOAESTHESIA
     Dosage: 150 MG DAILY
     Route: 048
     Dates: start: 20110501, end: 20110812
  2. TAXOL [Suspect]
     Dosage: UNK
     Route: 042

REACTIONS (1)
  - INTERSTITIAL LUNG DISEASE [None]
